FAERS Safety Report 18784689 (Version 1)
Quarter: 2021Q1

REPORT INFORMATION
  Report Type: Spontaneous
  Country: DE (occurrence: DE)
  Receive Date: 20210125
  Receipt Date: 20210125
  Transmission Date: 20210419
  Serious: Yes (Death, Other)
  Sender: FDA-Public Use
  Company Number: DE-TEVA-2021-DE-1871335

PATIENT
  Age: 32 Year
  Sex: Female
  Weight: 70 kg

DRUGS (7)
  1. MISOPROSTOL. [Concomitant]
     Active Substance: MISOPROSTOL
     Indication: LABOUR INDUCTION
     Route: 048
     Dates: start: 20200818, end: 20200818
  2. COLECALCIFEROL [Concomitant]
     Active Substance: CHOLECALCIFEROL
     Indication: OSTEOPOROSIS PROPHYLAXIS
     Dosage: 400 IU (INTERNATIONAL UNIT) DAILY;
     Route: 048
     Dates: start: 20200220, end: 20200306
  3. CEFTRIAXON [Concomitant]
     Active Substance: CEFTRIAXONE
     Indication: BACTERIAL INFECTION
     Route: 042
     Dates: start: 20200818, end: 20200819
  4. PENTASA [Suspect]
     Active Substance: MESALAMINE
     Indication: COLITIS ULCERATIVE
     Dosage: 4000 MILLIGRAM DAILY;
     Route: 048
     Dates: start: 20191122, end: 20200819
  5. PREDNISOLONE. [Suspect]
     Active Substance: PREDNISOLONE
     Indication: COLITIS ULCERATIVE
     Dosage: 50 [MG / D (UP TO 30 MG / D)]
     Route: 048
     Dates: start: 20200220, end: 20200819
  6. PENTASA [Suspect]
     Active Substance: MESALAMINE
     Indication: COLITIS ULCERATIVE
     Dosage: 1000 [MG/2D ]
     Route: 054
     Dates: start: 20191122, end: 20200819
  7. CORTIMENT [Concomitant]
     Indication: COLITIS ULCERATIVE
     Dosage: 9 MILLIGRAM DAILY;
     Route: 048
     Dates: start: 20200208, end: 20200219

REACTIONS (3)
  - Foetal death [Fatal]
  - Exposure during pregnancy [Unknown]
  - Stillbirth [Fatal]
